FAERS Safety Report 5468185-6 (Version None)
Quarter: 2007Q3

REPORT INFORMATION
  Report Type: 
  Country: None (occurrence: None)
  Receive Date: 20070926
  Receipt Date: 20070913
  Transmission Date: 20080115
  Serious: Yes (Death)
  Sender: FDA-Public Use
  Company Number: US-ELI_LILLY_AND_COMPANY-US200709002728

PATIENT
  Age: 76 Year
  Sex: Male

DRUGS (4)
  1. FORTEO [Suspect]
     Dates: start: 20070401
  2. COUMADIN [Concomitant]
  3. ENABLEX                            /01760402/ [Concomitant]
  4. LEXAPRO [Concomitant]

REACTIONS (1)
  - LEUKAEMIA [None]
